FAERS Safety Report 7684935-2 (Version None)
Quarter: 2011Q3

REPORT INFORMATION
  Report Type: 
  Country: None (occurrence: None)
  Receive Date: 20110816
  Receipt Date: 20110808
  Transmission Date: 20111222
  Serious: Yes (Other)
  Sender: FDA-Public Use
  Company Number: US-CEPHALON-US018341

PATIENT
  Sex: Male

DRUGS (1)
  1. PROVIGIL [Suspect]
     Indication: NARCOLEPSY
     Route: 048
     Dates: start: 19960101

REACTIONS (10)
  - VIITH NERVE PARALYSIS [None]
  - PHOBIA [None]
  - NAUSEA [None]
  - FATIGUE [None]
  - HEADACHE [None]
  - DISSOCIATION [None]
  - DIZZINESS [None]
  - SOMNOLENCE [None]
  - PARANOIA [None]
  - URTICARIA [None]
